FAERS Safety Report 9891579 (Version 3)
Quarter: 2017Q2

REPORT INFORMATION
  Report Type: Spontaneous
  Country: FR (occurrence: FR)
  Receive Date: 20140212
  Receipt Date: 20170428
  Transmission Date: 20170830
  Serious: Yes (Hospitalization)
  Sender: FDA-Public Use
  Company Number: PHHY2014FR015288

PATIENT
  Age: 65 Year
  Sex: Female
  Weight: 89 kg

DRUGS (16)
  1. DIAMICRON [Concomitant]
     Active Substance: GLICLAZIDE
     Dosage: 30 MG, UNK
  2. SOMATOSTATINE [Suspect]
     Active Substance: SOMATOSTATIN
     Indication: GASTROINTESTINAL HAEMORRHAGE
     Dosage: UNK UKN, BID
     Route: 042
     Dates: start: 20131211, end: 20131216
  3. STAGID [Concomitant]
     Active Substance: METFORMIN PAMOATE
     Dosage: 700 MG, UNK
  4. INEXIUM//ESOMEPRAZOLE SODIUM [Concomitant]
     Active Substance: ESOMEPRAZOLE SODIUM
     Dosage: 40 MG, UNK
  5. SOMATULINE LP [Suspect]
     Active Substance: LANREOTIDE ACETATE
     Indication: GASTROINTESTINAL HAEMORRHAGE
     Dosage: 30 MG, EVERY 14 DAYS
     Route: 030
     Dates: start: 20131216
  6. SOMATULINE LP [Suspect]
     Active Substance: LANREOTIDE ACETATE
     Indication: ANGIODYSPLASIA
     Dosage: 30 MG, EVERY 14 DAYS
     Route: 030
     Dates: end: 20131230
  7. LANTUS [Concomitant]
     Active Substance: INSULIN GLARGINE
     Dosage: 18 U, QD
  8. SINTROM [Concomitant]
     Active Substance: ACENOCOUMAROL
     Dosage: 2 DF, IN EVENING
  9. SANDOSTATIN [Suspect]
     Active Substance: OCTREOTIDE ACETATE
     Indication: GASTROINTESTINAL HAEMORRHAGE
     Dosage: 100 UG PER 1 ML BID
     Route: 058
     Dates: start: 20131212, end: 20131216
  10. SANDOSTATIN [Suspect]
     Active Substance: OCTREOTIDE ACETATE
     Indication: OFF LABEL USE
  11. SOMATOSTATINE [Suspect]
     Active Substance: SOMATOSTATIN
     Indication: OFF LABEL USE
     Dosage: 3 MG, QD
     Route: 042
     Dates: start: 20140107, end: 20140116
  12. CORDARONE [Concomitant]
     Active Substance: AMIODARONE HYDROCHLORIDE
     Dosage: 1 DF, QD
  13. COVERSYL                                /FRA/ [Concomitant]
     Active Substance: PERINDOPRIL
     Dosage: 2 MG, QD
  14. SERETIDE [Concomitant]
     Active Substance: FLUTICASONE PROPIONATE\SALMETEROL XINAFOATE
     Dosage: UNK UKN, UNK
  15. SINTROM [Concomitant]
     Active Substance: ACENOCOUMAROL
     Dosage: UNK UKN, UNK
  16. SINTROM [Concomitant]
     Active Substance: ACENOCOUMAROL
     Dosage: 8 MG, UNK

REACTIONS (2)
  - Interstitial lung disease [Unknown]
  - Eosinophilia [Unknown]

NARRATIVE: CASE EVENT DATE: 201312
